FAERS Safety Report 11654277 (Version 1)
Quarter: 2015Q4

REPORT INFORMATION
  Report Type: Spontaneous
  Country: US (occurrence: US)
  Receive Date: 20151023
  Receipt Date: 20151023
  Transmission Date: 20160304
  Serious: Yes (Disabling, Other)
  Sender: FDA-Public Use
  Company Number: US-WEST-WARD PHARMACEUTICALS CORP.-US-H14001-15-01833

PATIENT
  Age: 39 Year
  Sex: Male

DRUGS (9)
  1. AMIKACIN [Suspect]
     Active Substance: AMIKACIN
     Indication: TUBERCULOSIS
     Route: 065
  2. CYCLOSERINE. [Suspect]
     Active Substance: CYCLOSERINE
     Indication: TUBERCULOSIS
     Route: 065
  3. DORIPENEM [Suspect]
     Active Substance: DORIPENEM
     Indication: TUBERCULOSIS
     Route: 065
  4. BEDAQUILINE [Suspect]
     Active Substance: BEDAQUILINE
     Indication: TUBERCULOSIS
     Route: 065
  5. PAS [Suspect]
     Active Substance: AMINOSALICYLIC ACID
     Indication: TUBERCULOSIS
     Route: 065
  6. CO-AMOXICLAV [Suspect]
     Active Substance: AMOXICILLIN\CLAVULANIC ACID
     Indication: TUBERCULOSIS
     Route: 065
  7. LINEZOLID. [Suspect]
     Active Substance: LINEZOLID
     Indication: TUBERCULOSIS
     Route: 065
  8. CLOFAZIMINE [Suspect]
     Active Substance: CLOFAZIMINE
     Indication: TUBERCULOSIS
     Route: 065
  9. LINEZOLID. [Suspect]
     Active Substance: LINEZOLID
     Route: 065

REACTIONS (2)
  - Neuropathy peripheral [Unknown]
  - Toxicity to various agents [Unknown]
